FAERS Safety Report 7470855-5 (Version None)
Quarter: 2011Q2

REPORT INFORMATION
  Report Type: 
  Country: None (occurrence: None)
  Receive Date: 20110506
  Receipt Date: 20110506
  Transmission Date: 20111010
  Serious: Yes (Hospitalization)
  Sender: FDA-Public Use
  Company Number: None

PATIENT
  Age: 57 Year
  Sex: Female
  Weight: 52.6173 kg

DRUGS (1)
  1. BACLOFEN [Suspect]
     Indication: ERUCTATION
     Dosage: 1 10 MG. TABLET 3 TIMES A DAY PO
     Route: 048
     Dates: start: 20110430, end: 20110504

REACTIONS (1)
  - CHEST PAIN [None]
